FAERS Safety Report 7759017-1 (Version None)
Quarter: 2011Q3

REPORT INFORMATION
  Report Type: 
  Country: None (occurrence: None)
  Receive Date: 20110919
  Receipt Date: 20110906
  Transmission Date: 20111222
  Serious: Yes (Hospitalization, Other)
  Sender: FDA-Public Use
  Company Number: FR-ELI_LILLY_AND_COMPANY-FR201107001820

PATIENT
  Age: 60 Year
  Sex: Female

DRUGS (4)
  1. FORTEO [Suspect]
     Indication: OSTEOPOROSIS
     Dosage: 20 UG, QD
     Route: 058
     Dates: start: 20110517
  2. TRAMADOL HCL [Concomitant]
     Dosage: 100 MG, BID
  3. UVEDOSE [Concomitant]
     Indication: VITAMIN D DEFICIENCY
     Dosage: 1 DF, OTHER
  4. CALCIUM +D3 [Concomitant]
     Dosage: 2 DF, QD

REACTIONS (3)
  - FEMUR FRACTURE [None]
  - FALL [None]
  - POST PROCEDURAL INFECTION [None]
